FAERS Safety Report 24804046 (Version 1)
Quarter: 2025Q1

REPORT INFORMATION
  Report Type: Spontaneous
  Country: US (occurrence: None)
  Receive Date: 20250102
  Receipt Date: 20250102
  Transmission Date: 20250408
  Serious: No
  Sender: FDA-CTU
  Company Number: None

PATIENT
  Age: 65 Year
  Sex: Female

DRUGS (2)
  1. AMBRISENTAN [Suspect]
     Active Substance: AMBRISENTAN
     Indication: Pulmonary hypertension
     Dosage: FREQUENCY : DAILY;?
     Route: 048
     Dates: start: 20241209, end: 20241221
  2. TADALAFIL [Suspect]
     Active Substance: TADALAFIL

REACTIONS (6)
  - Drug intolerance [None]
  - Vision blurred [None]
  - Pain in extremity [None]
  - Sleep disorder [None]
  - Insomnia [None]
  - Affect lability [None]

NARRATIVE: CASE EVENT DATE: 20241227
